FAERS Safety Report 9371441 (Version 1)
Quarter: 2013Q2

REPORT INFORMATION
  Report Type: Report from Study
  Country: US (occurrence: US)
  Receive Date: 20130627
  Receipt Date: 20130627
  Transmission Date: 20140414
  Serious: Yes (Death, Life-Threatening, Hospitalization)
  Sender: FDA-Public Use
  Company Number: US-ROCHE-1240753

PATIENT
  Age: 53 Year
  Sex: Female
  Weight: 72.6 kg

DRUGS (14)
  1. BEVACIZUMAB [Suspect]
     Indication: ADENOCARCINOMA OF COLON
     Dosage: MOST RECENT DOSE PRIOR TO SAE: 342 MG (5 MG/KG)
     Route: 042
     Dates: start: 20130225, end: 20130506
  2. BEVACIZUMAB [Suspect]
     Indication: METASTASES TO LIVER
  3. FOLINIC ACID [Suspect]
     Indication: ADENOCARCINOMA OF COLON
     Dosage: MOST RECENT DOSE PRIOR TO SAE:700 MG (400MG/KG)
     Route: 042
     Dates: start: 20130225, end: 20130506
  4. FOLINIC ACID [Suspect]
     Indication: METASTASES TO LIVER
  5. FLUOROURACIL [Suspect]
     Indication: ADENOCARCINOMA OF COLON
     Dosage: MOST RECENT DOSE PRIOR TO SAE: 712 MG
     Route: 040
     Dates: start: 20130225, end: 20130506
  6. FLUOROURACIL [Suspect]
     Indication: METASTASES TO LIVER
     Dosage: MOST RECENT DOSE PRIOR TO SAE: 4248 MG
     Route: 041
     Dates: start: 20130225, end: 20130506
  7. FLUOROURACIL [Suspect]
     Dosage: MOST RECENT DOSE PRIOR TO SAE: 712 MG
     Route: 040
     Dates: start: 20130225, end: 20130506
  8. OXALIPLATIN [Suspect]
     Indication: ADENOCARCINOMA OF COLON
     Dosage: MOST RECENT DOSE PRIOR TO SAE:148 MG (85 MG/KG)
     Route: 042
     Dates: start: 20130225, end: 20130506
  9. OXALIPLATIN [Suspect]
     Indication: METASTASES TO LIVER
  10. ALPRAZOLAM [Concomitant]
     Route: 065
     Dates: start: 20130218
  11. PROCHLORPERAZINE MALEATE [Concomitant]
     Route: 065
     Dates: start: 20130218
  12. LISINOPRIL/HCTZ [Concomitant]
     Route: 065
     Dates: start: 20130225
  13. LORTAB [Concomitant]
     Route: 065
     Dates: start: 20130225
  14. PROTONIX (PANTOPRAZOLE SODIUM) [Concomitant]
     Route: 065
     Dates: start: 20130218

REACTIONS (1)
  - Posterior reversible encephalopathy syndrome [Fatal]
